FAERS Safety Report 16577611 (Version 3)
Quarter: 2019Q4

REPORT INFORMATION
  Report Type: Spontaneous
  Country: JP (occurrence: JP)
  Receive Date: 20190716
  Receipt Date: 20191210
  Transmission Date: 20200122
  Serious: Yes (Other)
  Sender: FDA-Public Use
  Company Number: JP-ASTRAZENECA-2019SF01044

PATIENT
  Age: 70 Year
  Sex: Male

DRUGS (3)
  1. IMFINZI [Suspect]
     Active Substance: DURVALUMAB
     Indication: NON-SMALL CELL LUNG CANCER
     Route: 042
     Dates: start: 20181020
  2. PREDONINE [Concomitant]
     Active Substance: PREDNISOLONE
  3. IMFINZI [Suspect]
     Active Substance: DURVALUMAB
     Indication: NON-SMALL CELL LUNG CANCER
     Dosage: 22ND COURSE OF IMFINZI (DURVALUMAB) WAS ADMINISTERED, 633 MG EVERY TWO WEEKS
     Route: 042
     Dates: start: 20191108

REACTIONS (5)
  - Abnormal behaviour [Unknown]
  - Metastases to central nervous system [Unknown]
  - Poverty of speech [Unknown]
  - Dyslalia [Recovered/Resolved]
  - Movement disorder [Unknown]

NARRATIVE: CASE EVENT DATE: 2019
